FAERS Safety Report 24237945 (Version 1)
Quarter: 2024Q3

REPORT INFORMATION
  Report Type: Spontaneous
  Country: CN (occurrence: CN)
  Receive Date: 20240822
  Receipt Date: 20240822
  Transmission Date: 20241016
  Serious: Yes (Other)
  Sender: OTSUKA
  Company Number: CN-OTSUKA-2024_022607

PATIENT
  Age: 18 Year
  Sex: Female
  Weight: 60 kg

DRUGS (6)
  1. ABILIFY [Suspect]
     Active Substance: ARIPIPRAZOLE
     Indication: Depressed mood
     Dosage: 12 DF, QD
     Route: 048
     Dates: start: 20231122, end: 20231122
  2. ABILIFY [Suspect]
     Active Substance: ARIPIPRAZOLE
     Indication: Intentional self-injury
  3. FLUOXETINE HYDROCHLORIDE [Suspect]
     Active Substance: FLUOXETINE HYDROCHLORIDE
     Indication: Depressed mood
     Dosage: 20 MG, QD (5 CAPSULES)
     Route: 048
     Dates: start: 20231122, end: 20231122
  4. FLUOXETINE HYDROCHLORIDE [Suspect]
     Active Substance: FLUOXETINE HYDROCHLORIDE
     Indication: Intentional self-injury
  5. LITHIUM CARBONATE [Suspect]
     Active Substance: LITHIUM CARBONATE
     Indication: Depressed mood
     Dosage: 10 DF, QD
     Route: 048
     Dates: start: 20231122, end: 20231122
  6. LITHIUM CARBONATE [Suspect]
     Active Substance: LITHIUM CARBONATE
     Indication: Intentional self-injury

REACTIONS (4)
  - Toxicity to various agents [Recovering/Resolving]
  - Asthenia [Unknown]
  - Dizziness [Recovering/Resolving]
  - Somnolence [Recovering/Resolving]

NARRATIVE: CASE EVENT DATE: 20231122
